FAERS Safety Report 8222658-1 (Version None)
Quarter: 2012Q1

REPORT INFORMATION
  Report Type: 
  Country: None (occurrence: None)
  Receive Date: 20120315
  Receipt Date: 20120306
  Transmission Date: 20120608
  Serious: Yes (Death)
  Sender: FDA-Public Use
  Company Number: 2012SP012150

PATIENT
  Age: 45 Year
  Sex: Male
  Weight: 115 kg

DRUGS (9)
  1. LISINOPRIL [Concomitant]
  2. VICTRELIS [Suspect]
     Indication: HEPATITIS C
     Dosage: 2400 MG;QD
     Dates: start: 20111224, end: 20120302
  3. TIAZID [Concomitant]
  4. BICANORM [Concomitant]
  5. PEG-INTRON [Suspect]
     Indication: HEPATITIS C
     Dosage: 150 MCG;QW
     Dates: start: 20111224, end: 20120302
  6. REBETOL [Suspect]
     Indication: HEPATITIS C
     Dosage: 1400 MG;QD; 1000 MG;QD
     Dates: start: 20111224, end: 20120208
  7. REBETOL [Suspect]
     Indication: HEPATITIS C
     Dosage: 1400 MG;QD; 1000 MG;QD
     Dates: start: 20120209, end: 20120214
  8. SOTALOL HCL [Concomitant]
  9. ALLOPURINOL [Concomitant]

REACTIONS (5)
  - ASPIRATION [None]
  - HAEMATEMESIS [None]
  - ASPHYXIA [None]
  - FATIGUE [None]
  - ANAEMIA [None]
